FAERS Safety Report 19831086 (Version 3)
Quarter: 2021Q4

REPORT INFORMATION
  Report Type: Spontaneous
  Country: CA (occurrence: CA)
  Receive Date: 20210915
  Receipt Date: 20211102
  Transmission Date: 20220303
  Serious: Yes (Death, Other)
  Sender: FDA-Public Use
  Company Number: CA-CELLTRION INC.-2021CA012353

PATIENT

DRUGS (4)
  1. INFLECTRA [Suspect]
     Active Substance: INFLIXIMAB-DYYB
     Indication: Crohn^s disease
     Dosage: 400 MG, Q 0,2,6 WEEKS THEN EVERY 8 WEEKS (Q 0 WEEK)
     Route: 042
     Dates: start: 20210527
  2. INFLECTRA [Suspect]
     Active Substance: INFLIXIMAB-DYYB
     Dosage: 400 MG, Q 0,2,6 WEEKS THEN EVERY 8 WEEKS (Q 2 WEEK)
     Route: 042
     Dates: start: 20210610
  3. INFLECTRA [Suspect]
     Active Substance: INFLIXIMAB-DYYB
     Dosage: 400 MG, Q 0,2,6 WEEKS THEN EVERY 8 WEEKS
     Route: 042
     Dates: start: 20210709
  4. METHOTREXATE [Concomitant]
     Active Substance: METHOTREXATE
     Dosage: 1 DF, UNKNOWN DOSE
     Dates: start: 2021, end: 202109

REACTIONS (8)
  - Myocardial infarction [Fatal]
  - Fatigue [Unknown]
  - Condition aggravated [Not Recovered/Not Resolved]
  - Vertigo [Unknown]
  - Dyspepsia [Unknown]
  - Malaise [Unknown]
  - Feeling abnormal [Unknown]
  - Chest pain [Recovering/Resolving]

NARRATIVE: CASE EVENT DATE: 20210101
